FAERS Safety Report 5201500-7 (Version None)
Quarter: 2007Q1

REPORT INFORMATION
  Report Type: 
  Country: None (occurrence: None)
  Receive Date: 20070104
  Receipt Date: 20061228
  Transmission Date: 20070707
  Serious: Yes (Other)
  Sender: FDA-Public Use
  Company Number: 234419

PATIENT
  Age: 13 Year
  Sex: Female
  Weight: 58.6 kg

DRUGS (3)
  1. NUTROPIN [Suspect]
     Indication: HYPOPITUITARISM
     Dosage: 2.5 MG, 6/WEEK, SUBCUTANEOUS
     Route: 058
     Dates: start: 20031222, end: 20041227
  2. DDAVP (DESMOPRESSIN ACETATE) [Concomitant]
  3. SYNTHROID [Concomitant]

REACTIONS (1)
  - CRANIOPHARYNGIOMA [None]
